FAERS Safety Report 13446794 (Version 2)
Quarter: 2017Q2

REPORT INFORMATION
  Report Type: Spontaneous
  Country: JP (occurrence: JP)
  Receive Date: 20170417
  Receipt Date: 20170420
  Transmission Date: 20170830
  Serious: Yes (Other)
  Sender: FDA-Public Use
  Company Number: JP-MYLANLABS-2017M1023307

PATIENT

DRUGS (1)
  1. EPIPEN [Suspect]
     Active Substance: EPINEPHRINE
     Indication: PRODUCT USED FOR UNKNOWN INDICATION
     Dosage: 0.3 MG, ONCE
     Dates: start: 2016

REACTIONS (3)
  - Device use issue [Unknown]
  - Product use issue [Unknown]
  - Device failure [Unknown]

NARRATIVE: CASE EVENT DATE: 2016
